FAERS Safety Report 13106798 (Version 5)
Quarter: 2017Q4

REPORT INFORMATION
  Report Type: Spontaneous
  Country: US (occurrence: US)
  Receive Date: 20170111
  Receipt Date: 20171117
  Transmission Date: 20180320
  Serious: No
  Sender: FDA-Public Use
  Company Number: US-BAUSCH-BL-2016-027375

PATIENT
  Age: 27 Year
  Sex: Female

DRUGS (4)
  1. XENAZINE [Suspect]
     Active Substance: TETRABENAZINE
     Indication: DYSKINESIA
     Route: 048
  2. XENAZINE [Suspect]
     Active Substance: TETRABENAZINE
     Indication: TARDIVE DYSKINESIA
     Route: 048
  3. XENAZINE [Suspect]
     Active Substance: TETRABENAZINE
     Route: 048
     Dates: start: 20130325
  4. XENAZINE [Suspect]
     Active Substance: TETRABENAZINE
     Dosage: 12.5 MG IN THE MORNING AND 25 MG IN THE EVENING FOR 1 WEEK
     Route: 048

REACTIONS (7)
  - Tremor [Unknown]
  - Panic attack [Unknown]
  - Drug dose omission [Unknown]
  - Crying [Unknown]
  - Anxiety [Unknown]
  - Hypoaesthesia [Unknown]
  - Off label use [Unknown]

NARRATIVE: CASE EVENT DATE: 20161107
